FAERS Safety Report 20343552 (Version 5)
Quarter: 2022Q1

REPORT INFORMATION
  Report Type: Spontaneous
  Country: PL (occurrence: PL)
  Receive Date: 20220118
  Receipt Date: 20220218
  Transmission Date: 20220423
  Serious: Yes (Death, Hospitalization, Other)
  Sender: FDA-Public Use
  Company Number: PL-SUN PHARMACEUTICAL INDUSTRIES LTD-2022RR-323775

PATIENT
  Age: 36 Year
  Sex: Male

DRUGS (19)
  1. OLANZAPINE [Suspect]
     Active Substance: OLANZAPINE
     Indication: Mental disorder
     Dosage: 10 MG, PER DAY IN THE EVENING
     Route: 065
  2. OLANZAPINE [Suspect]
     Active Substance: OLANZAPINE
     Indication: Schizophrenia
     Dosage: 10 MILLIGRAM, HS
     Route: 065
  3. OLANZAPINE [Suspect]
     Active Substance: OLANZAPINE
     Indication: Catatonia
  4. OLANZAPINE [Suspect]
     Active Substance: OLANZAPINE
     Indication: Catatonia
  5. OLANZAPINE [Suspect]
     Active Substance: OLANZAPINE
     Indication: Obsessive-compulsive disorder
  6. OLANZAPINE [Suspect]
     Active Substance: OLANZAPINE
     Indication: Intellectual disability
  7. RISPERIDONE [Suspect]
     Active Substance: RISPERIDONE
     Indication: Schizophrenia
     Dosage: 4.5 MG/DAY
     Route: 065
  8. RISPERIDONE [Suspect]
     Active Substance: RISPERIDONE
     Indication: Mental disorder
     Dosage: GRADUALLY REDUCED
     Route: 048
  9. RISPERIDONE [Suspect]
     Active Substance: RISPERIDONE
     Indication: Obsessive-compulsive disorder
  10. RISPERIDONE [Suspect]
     Active Substance: RISPERIDONE
     Indication: Intellectual disability
  11. PROPRANOLOL [Suspect]
     Active Substance: PROPRANOLOL HYDROCHLORIDE
     Indication: Hypertension
     Dosage: 20 MILLIGRAM, QD (20 MG, PER DAY)
     Route: 065
  12. FEVARIN [Suspect]
     Active Substance: FLUVOXAMINE MALEATE
     Indication: Catatonia
     Dosage: 100 MILLIGRAM, EVERY MORNING
     Route: 065
  13. FEVARIN [Suspect]
     Active Substance: FLUVOXAMINE MALEATE
     Indication: Intellectual disability
     Dosage: 200 MILLIGRAM, QD
     Route: 065
  14. FEVARIN [Suspect]
     Active Substance: FLUVOXAMINE MALEATE
     Indication: Intellectual disability
     Dosage: 300 MILLIGRAM, QD, 100 MG IN THE MORNING AND 200 MG IN THE EVENING
     Route: 065
  15. FEVARIN [Suspect]
     Active Substance: FLUVOXAMINE MALEATE
     Indication: Obsessive-compulsive disorder
     Route: 065
  16. FEVARIN [Suspect]
     Active Substance: FLUVOXAMINE MALEATE
     Indication: Mental disorder
  17. SIMVASTATIN [Suspect]
     Active Substance: SIMVASTATIN
     Dosage: 20 MILLIGRAM, QD (20 MILLIGRAM PER DAY)
     Route: 065
  18. SIMVASTATIN [Suspect]
     Active Substance: SIMVASTATIN
     Indication: Hypertension
     Dosage: 20 MILLIGRAM, QD (20 MILLIGRAM PER DAY)
     Route: 065
  19. SIMVASTATIN [Suspect]
     Active Substance: SIMVASTATIN
     Indication: Lipid metabolism disorder

REACTIONS (10)
  - Pulmonary embolism [Fatal]
  - Drug ineffective [Fatal]
  - Serotonin syndrome [Fatal]
  - Psychomotor skills impaired [Fatal]
  - Obesity [Fatal]
  - Joint swelling [Fatal]
  - Gynaecomastia [Fatal]
  - Catatonia [Fatal]
  - Upper respiratory tract congestion [Fatal]
  - Cough [Fatal]
